FAERS Safety Report 4798144-8 (Version None)
Quarter: 2005Q4

REPORT INFORMATION
  Report Type: 
  Country: None (occurrence: None)
  Receive Date: 20051006
  Receipt Date: 20051006
  Transmission Date: 20060501
  Serious: Yes (Hospitalization)
  Sender: FDA-Public Use
  Company Number: None

PATIENT
  Age: 28 Year
  Sex: Male

DRUGS (10)
  1. NOREPINEPHRINE [Suspect]
     Indication: HYPOTENSION
     Dosage: 5CG/MIN IV CI
     Route: 042
     Dates: start: 20040620
  2. VASOPRESSIN [Concomitant]
  3. HETASTARCH 6% IN 0.9% SODIUM CHLORIDE IN PLASTIC CONTAINER [Concomitant]
  4. PROPAFOL [Concomitant]
  5. HEPARIN [Concomitant]
  6. HYDROMORPHONE [Concomitant]
  7. BISACODYL SUPP [Concomitant]
  8. VANCO [Concomitant]
  9. GENT [Concomitant]
  10. PIPERACILLIN/TAXOBACTAM [Concomitant]

REACTIONS (3)
  - ABDOMINAL PAIN [None]
  - IMPLANT SITE EXTRAVASATION [None]
  - PROCEDURAL HYPOTENSION [None]
